FAERS Safety Report 23789023 (Version 1)
Quarter: 2024Q2

REPORT INFORMATION
  Report Type: Spontaneous
  Country: US (occurrence: US)
  Receive Date: 20240426
  Receipt Date: 20240426
  Transmission Date: 20240716
  Serious: Yes (Other)
  Sender: FDA-Public Use
  Company Number: US-COOLA-2024-US-022890

PATIENT
  Sex: Female

DRUGS (1)
  1. AVOBENZONE, HOMOSALATE, AND OCTISALATE [Suspect]
     Active Substance: AVOBENZONE\HOMOSALATE\OCTISALATE
     Indication: Product used for unknown indication
     Route: 061

REACTIONS (2)
  - Hypersensitivity [Unknown]
  - Anaphylactic reaction [Unknown]
